FAERS Safety Report 6936043-3 (Version None)
Quarter: 2010Q3

REPORT INFORMATION
  Report Type: 
  Country: None (occurrence: None)
  Receive Date: 20100823
  Receipt Date: 20100723
  Transmission Date: 20110219
  Serious: No
  Sender: FDA-Public Use
  Company Number: US-BAYER-201028887NA

PATIENT
  Age: 9 Year
  Sex: Male

DRUGS (1)
  1. ULTRAVIST 300 [Suspect]
     Indication: COMPUTERISED TOMOGRAM THORAX
     Dosage: TOTAL DAILY DOSE: 68 ML  UNIT DOSE: 300 ML
     Route: 042
     Dates: start: 20100723, end: 20100723

REACTIONS (2)
  - NAUSEA [None]
  - VOMITING [None]
